FAERS Safety Report 15564911 (Version 1)
Quarter: 2018Q4

REPORT INFORMATION
  Report Type: Spontaneous
  Country: PL (occurrence: PL)
  Receive Date: 20181030
  Receipt Date: 20181030
  Transmission Date: 20190205
  Serious: Yes (Other)
  Sender: FDA-Public Use
  Company Number: PL-ROCHE-2205031

PATIENT
  Sex: Male

DRUGS (8)
  1. METOPROLOL. [Concomitant]
     Active Substance: METOPROLOL
  2. PERINDOPRIL [Concomitant]
     Active Substance: PERINDOPRIL
  3. METFORMIN [Concomitant]
     Active Substance: METFORMIN HYDROCHLORIDE
     Route: 065
  4. AMLODIPINE [Concomitant]
     Active Substance: AMLODIPINE BESYLATE
  5. TORASEMIDE [Concomitant]
     Active Substance: TORSEMIDE
     Route: 065
  6. ACENOCOUMAROL [Concomitant]
     Active Substance: ACENOCOUMAROL
  7. PIRFENIDONE. [Suspect]
     Active Substance: PIRFENIDONE
     Indication: IDIOPATHIC PULMONARY FIBROSIS
     Route: 065
     Dates: start: 201604
  8. GLICLAZIDE [Concomitant]
     Active Substance: GLICLAZIDE

REACTIONS (8)
  - Bladder papilloma [Unknown]
  - Respiratory tract infection [Unknown]
  - Cardiac failure [Unknown]
  - Condition aggravated [Unknown]
  - Atrial fibrillation [Unknown]
  - Influenza [Unknown]
  - Pneumonia [Unknown]
  - Renal failure [Unknown]

NARRATIVE: CASE EVENT DATE: 201605
